FAERS Safety Report 13260320 (Version 2)
Quarter: 2017Q1

REPORT INFORMATION
  Report Type: Spontaneous
  Country: HU (occurrence: HU)
  Receive Date: 20170222
  Receipt Date: 20170308
  Transmission Date: 20170428
  Serious: Yes (Death, Other)
  Sender: FDA-Public Use
  Company Number: HU-ACTELION-A-CH2017-149753

PATIENT
  Age: 69 Year
  Sex: Female

DRUGS (10)
  1. TRACLEER [Suspect]
     Active Substance: BOSENTAN
     Indication: PULMONARY ARTERIAL HYPERTENSION
     Dosage: 125 MG, BID
     Route: 048
     Dates: start: 20150219, end: 20170209
  2. SILDENAFIL. [Concomitant]
     Active Substance: SILDENAFIL
     Indication: PULMONARY ARTERIAL HYPERTENSION
     Dosage: 20 MG, TID
     Route: 048
     Dates: start: 20150219, end: 20170209
  3. DIGOXIN. [Concomitant]
     Active Substance: DIGOXIN
     Indication: CARDIAC FAILURE
     Dosage: UNK
     Route: 065
     Dates: end: 20170209
  4. WARFARIN [Concomitant]
     Active Substance: WARFARIN
     Indication: ATRIAL FLUTTER
  5. WARFARIN [Concomitant]
     Active Substance: WARFARIN
     Indication: ATRIAL FIBRILLATION
     Dosage: 4 MG, OD
     Route: 048
     Dates: end: 20170209
  6. CLOPIDOGREL [Concomitant]
     Active Substance: CLOPIDOGREL BISULFATE
     Indication: ATRIAL FLUTTER
  7. AMIODARON [Concomitant]
     Active Substance: AMIODARONE
     Indication: ATRIAL FIBRILLATION
     Dosage: 200 MG, OD
     Route: 048
  8. SPIRONOLACTONE. [Concomitant]
     Active Substance: SPIRONOLACTONE
     Indication: CARDIAC FAILURE
     Dosage: 25 MG, OD
     Route: 048
     Dates: end: 20170209
  9. AMIODARON [Concomitant]
     Active Substance: AMIODARONE
     Indication: ATRIAL FLUTTER
  10. CLOPIDOGREL [Concomitant]
     Active Substance: CLOPIDOGREL BISULFATE
     Indication: ATRIAL FIBRILLATION
     Dosage: 75 MG, OD
     Route: 048
     Dates: end: 20170209

REACTIONS (13)
  - Hypotension [Fatal]
  - Dyspnoea [Fatal]
  - International normalised ratio increased [Unknown]
  - Cardioversion [Unknown]
  - Gastritis erosive [Unknown]
  - Hypoxia [Fatal]
  - Atrial fibrillation [Recovered/Resolved]
  - Melaena [Unknown]
  - Right ventricular failure [Fatal]
  - Hepatic failure [Unknown]
  - Renal failure [Fatal]
  - Cardiac failure [Unknown]
  - Dehydration [Unknown]

NARRATIVE: CASE EVENT DATE: 201702
